FAERS Safety Report 21530177 (Version 1)
Quarter: 2022Q4

REPORT INFORMATION
  Report Type: Spontaneous
  Country: US (occurrence: None)
  Receive Date: 20221028
  Receipt Date: 20221028
  Transmission Date: 20230113
  Serious: Yes (Other)
  Sender: FDA-Public Use
  Company Number: None

PATIENT
  Age: 72 Year
  Sex: Female
  Weight: 116.8 kg

DRUGS (16)
  1. BEBTELOVIMAB [Suspect]
     Active Substance: BEBTELOVIMAB
     Indication: COVID-19
     Route: 040
     Dates: start: 20221027, end: 20221027
  2. ALBUTEROL [Concomitant]
     Active Substance: ALBUTEROL
  3. ALENDRONATE [Concomitant]
     Active Substance: ALENDRONATE SODIUM
  4. ASCORBIC ACID [Concomitant]
     Active Substance: ASCORBIC ACID
  5. ASPIRIN [Concomitant]
     Active Substance: ASPIRIN
  6. calcium/vitamin D; multivitamin [Concomitant]
  7. clobetasol topical [Concomitant]
  8. FLUTICASONE PROPIONATE\SALMETEROL XINAFOATE [Concomitant]
     Active Substance: FLUTICASONE PROPIONATE\SALMETEROL XINAFOATE
  9. FUROSEMIDE [Concomitant]
     Active Substance: FUROSEMIDE
  10. LEVOCETIRIZINE [Concomitant]
     Active Substance: LEVOCETIRIZINE
  11. LEVOTHYROXINE [Concomitant]
     Active Substance: LEVOTHYROXINE
  12. LOSARTAN [Concomitant]
     Active Substance: LOSARTAN
  13. MONTELUKAST [Concomitant]
     Active Substance: MONTELUKAST SODIUM
  14. SERTRALINE [Concomitant]
     Active Substance: SERTRALINE HYDROCHLORIDE
  15. spironlactone [Concomitant]
  16. tolerodine [Concomitant]

REACTIONS (3)
  - Pruritus [None]
  - Pruritus [None]
  - Infusion related reaction [None]

NARRATIVE: CASE EVENT DATE: 20221027
